FAERS Safety Report 4844699-4 (Version None)
Quarter: 2005Q4

REPORT INFORMATION
  Report Type: 
  Country: None (occurrence: None)
  Receive Date: 20051125
  Receipt Date: 20051111
  Transmission Date: 20060501
  Serious: Yes (Other)
  Sender: FDA-Public Use
  Company Number: 2005155868

PATIENT
  Age: 72 Year
  Sex: Female

DRUGS (5)
  1. AZITHROMYCIN [Suspect]
     Indication: STREPTOCOCCAL IMPETIGO
     Dosage: 500 MG (500 MG, QD), ORAL
     Route: 048
     Dates: start: 20041229, end: 20041229
  2. TAMBOCOR [Concomitant]
  3. LEVAXIN (LEVOTHYROINE SODIUM) [Concomitant]
  4. VALSARTAN [Concomitant]
  5. ALBYL-E (ACETYLSALICYLIC ACID, MAGNESIUM OXIDE) [Concomitant]

REACTIONS (4)
  - BLOOD THYROID STIMULATING HORMONE DECREASED [None]
  - CARDIAC FIBRILLATION [None]
  - CONDITION AGGRAVATED [None]
  - HYPOTHYROIDISM [None]
